FAERS Safety Report 11090181 (Version 1)
Quarter: 2015Q2

REPORT INFORMATION
  Report Type: Spontaneous
  Country: FR (occurrence: FR)
  Receive Date: 20150505
  Receipt Date: 20150505
  Transmission Date: 20150821
  Serious: Yes (Other)
  Sender: FDA-Public Use
  Company Number: FR-PFIZER INC-2015146992

PATIENT
  Age: 50 Year
  Sex: Female

DRUGS (1)
  1. SALAZOPYRINE [Suspect]
     Active Substance: SULFASALAZINE
     Indication: RHEUMATOID ARTHRITIS
     Dosage: 500 MG, ALTERNATE DAY
     Dates: start: 201410

REACTIONS (3)
  - Dermatitis [Not Recovered/Not Resolved]
  - Thermal burn [Not Recovered/Not Resolved]
  - Skin exfoliation [Not Recovered/Not Resolved]
